FAERS Safety Report 5110078-8 (Version None)
Quarter: 2006Q3

REPORT INFORMATION
  Report Type: 
  Country: None (occurrence: None)
  Receive Date: 20060921
  Receipt Date: 20060911
  Transmission Date: 20061208
  Serious: Yes (Hospitalization)
  Sender: FDA-Public Use
  Company Number: FR-AVENTIS-200613131FR

PATIENT
  Age: 30 Day
  Sex: Male
  Weight: 2 kg

DRUGS (8)
  1. FLAGYL ^AVENTIS^ [Suspect]
     Indication: NECROTISING COLITIS
     Route: 042
     Dates: start: 20060803, end: 20060806
  2. CLAFORAN [Suspect]
     Indication: NECROTISING COLITIS
     Route: 042
     Dates: start: 20060803, end: 20060811
  3. GENTAMICIN [Suspect]
     Indication: NECROTISING COLITIS
     Route: 042
     Dates: start: 20060803, end: 20060806
  4. DOBUTAMINE HCL [Suspect]
     Indication: CARDIOVASCULAR DISORDER
     Route: 042
     Dates: start: 20060803, end: 20060803
  5. HYPNOVEL [Suspect]
     Route: 042
     Dates: start: 20060803
  6. SUFENTA [Suspect]
     Route: 042
     Dates: start: 20060803
  7. DOPAMINE [Concomitant]
     Indication: CARDIOVASCULAR DISORDER
     Dates: start: 20060803, end: 20060804
  8. ACETAMINOPHEN [Concomitant]

REACTIONS (5)
  - AGRANULOCYTOSIS [None]
  - ANAEMIA NEONATAL [None]
  - EOSINOPHILIA [None]
  - NEUTROPENIA [None]
  - THROMBOCYTOPENIA [None]
